FAERS Safety Report 13937202 (Version 1)
Quarter: 2017Q3

REPORT INFORMATION
  Report Type: Spontaneous
  Country: US (occurrence: US)
  Receive Date: 20170905
  Receipt Date: 20170905
  Transmission Date: 20171127
  Serious: No
  Sender: FDA-Public Use
  Company Number: US-PFIZER INC-2017377765

PATIENT
  Sex: Male

DRUGS (2)
  1. CAVERJECT [Suspect]
     Active Substance: ALPROSTADIL
  2. EDEX [Suspect]
     Active Substance: ALPROSTADIL

REACTIONS (2)
  - Drug dispensing error [Unknown]
  - Drug effect incomplete [Unknown]
